FAERS Safety Report 19401648 (Version 1)
Quarter: 2021Q2

REPORT INFORMATION
  Report Type: Spontaneous
  Country: GB (occurrence: GB)
  Receive Date: 20210611
  Receipt Date: 20210611
  Transmission Date: 20210717
  Serious: Yes (Hospitalization)
  Sender: FDA-Public Use
  Company Number: GB-MACLEODS PHARMACEUTICALS US LTD-MAC2021031428

PATIENT

DRUGS (1)
  1. ACYCLOVIR. [Suspect]
     Active Substance: ACYCLOVIR
     Indication: HERPES ZOSTER
     Dosage: 2000 MILLIGRAM (5 DOSES OF 400 MG)
     Route: 048

REACTIONS (3)
  - Neurotoxicity [Recovered/Resolved]
  - Coma [Recovered/Resolved]
  - Toxic encephalopathy [Recovered/Resolved]
